FAERS Safety Report 5964517-0 (Version None)
Quarter: 2008Q4

REPORT INFORMATION
  Report Type: 
  Country: None (occurrence: None)
  Receive Date: 20081122
  Receipt Date: 20081122
  Transmission Date: 20090506
  Serious: No
  Sender: FDA-Public Use
  Company Number: None

PATIENT
  Age: 76 Year
  Sex: Female
  Weight: 52.1637 kg

DRUGS (1)
  1. BONIVA [Suspect]
     Indication: OSTEOPOROSIS
     Dosage: 150 MG ONCE A MONTH ORAL
     Route: 048
     Dates: start: 20060613

REACTIONS (3)
  - BACK PAIN [None]
  - CARDIAC FAILURE CONGESTIVE [None]
  - TACHYCARDIA [None]
